FAERS Safety Report 4681064-7 (Version None)
Quarter: 2005Q2

REPORT INFORMATION
  Report Type: 
  Country: None (occurrence: None)
  Receive Date: 20050603
  Receipt Date: 20050427
  Transmission Date: 20051028
  Serious: Yes (Hospitalization, Other)
  Sender: FDA-Public Use
  Company Number: CA-GLAXOSMITHKLINE-A0556287A

PATIENT
  Age: 34 Year
  Sex: Female
  Weight: 77.6 kg

DRUGS (2)
  1. ZOFRAN [Suspect]
     Indication: NAUSEA
     Dosage: 4MG SINGLE DOSE
     Route: 042
     Dates: start: 20050426, end: 20050426
  2. DEMEROL [Concomitant]
     Indication: CHILLS
     Route: 042

REACTIONS (11)
  - ANAPHYLACTIC REACTION [None]
  - BLOOD PRESSURE DECREASED [None]
  - DRUG EXPOSURE DURING PREGNANCY [None]
  - DYSPHONIA [None]
  - ERYTHEMA [None]
  - EYELID OEDEMA [None]
  - FACE OEDEMA [None]
  - HYPOTENSION [None]
  - PHARYNGEAL OEDEMA [None]
  - PRURITUS [None]
  - THROAT TIGHTNESS [None]
